FAERS Safety Report 10088734 (Version 1)
Quarter: 2014Q2

REPORT INFORMATION
  Report Type: Report from Study
  Country: CL (occurrence: CL)
  Receive Date: 20140421
  Receipt Date: 20140421
  Transmission Date: 20141212
  Serious: Yes (Death)
  Sender: FDA-Public Use
  Company Number: CL-ROCHE-1386260

PATIENT
  Age: 57 Year
  Sex: Male

DRUGS (1)
  1. XELODA [Suspect]
     Indication: RECTAL CANCER
     Dosage: 14-DAY-CYCLE
     Route: 048
     Dates: start: 20140210, end: 20140219

REACTIONS (1)
  - Disease progression [Fatal]
